FAERS Safety Report 6644197-1 (Version None)
Quarter: 2010Q1

REPORT INFORMATION
  Report Type: 
  Country: None (occurrence: None)
  Receive Date: 20100322
  Receipt Date: 20100308
  Transmission Date: 20100710
  Serious: Yes (Other)
  Sender: FDA-Public Use
  Company Number: FR-CELGENEUS-056-50794-10030993

PATIENT
  Age: 69 Year
  Sex: Male

DRUGS (1)
  1. VIDAZA [Suspect]
     Route: 058

REACTIONS (1)
  - HAEMOLYTIC ANAEMIA [None]
